FAERS Safety Report 9915471 (Version 2)
Quarter: 2014Q2

REPORT INFORMATION
  Report Type: Spontaneous
  Country: AU (occurrence: AU)
  Receive Date: 20140221
  Receipt Date: 20140407
  Transmission Date: 20141212
  Serious: Yes (Death, Other)
  Sender: FDA-Public Use
  Company Number: AU-ROCHE-1353358

PATIENT
  Age: 85 Year
  Sex: Female

DRUGS (3)
  1. ALTEPLASE [Suspect]
     Indication: CEREBRAL INFARCTION
     Route: 065
  2. WARFARIN [Suspect]
     Indication: ANTICOAGULANT THERAPY
     Route: 048
  3. ENOXAPARIN [Concomitant]
     Indication: PRODUCT USED FOR UNKNOWN INDICATION
     Route: 058

REACTIONS (4)
  - Sepsis [Fatal]
  - Renal failure [Fatal]
  - Blue toe syndrome [Unknown]
  - Fat embolism [Unknown]
